FAERS Safety Report 5026173-8 (Version None)
Quarter: 2006Q2

REPORT INFORMATION
  Report Type: 
  Country: None (occurrence: None)
  Receive Date: 20060608
  Receipt Date: 20060524
  Transmission Date: 20061013
  Serious: Yes (Hospitalization, Other)
  Sender: FDA-Public Use
  Company Number: USA-2005-0021465

PATIENT
  Age: 44 Year
  Sex: Male

DRUGS (6)
  1. OXYCONTIN TABLETS (OXYCODONE HYDROCHLORIDE) PROLONGED-RELEASED TABLET [Suspect]
     Dosage: SEE TEXT,
  2. DURAGESIC-100 [Concomitant]
  3. DARVOCET [Concomitant]
  4. PIROXICAM [Concomitant]
  5. TYLENOL EXTRA-STRENGTH [Concomitant]
  6. FLEXERIL [Concomitant]

REACTIONS (48)
  - ABDOMINAL PAIN [None]
  - ACCIDENTAL OVERDOSE [None]
  - ANAEMIA [None]
  - ANXIETY [None]
  - BACK PAIN [None]
  - BLEPHARITIS [None]
  - BODY TINEA [None]
  - CARDIAC FLUTTER [None]
  - COMA [None]
  - DELUSIONAL DISORDER, UNSPECIFIED TYPE [None]
  - DEPRESSION [None]
  - DRUG DEPENDENCE [None]
  - DRUG TOLERANCE [None]
  - DRUG WITHDRAWAL SYNDROME [None]
  - EYE BURNS [None]
  - EYE PAIN [None]
  - EYE SWELLING [None]
  - EYELID OEDEMA [None]
  - FEELING HOT [None]
  - FLUSHING [None]
  - FULL BLOOD COUNT DECREASED [None]
  - FUNGAL RASH [None]
  - HAEMATEMESIS [None]
  - HEADACHE [None]
  - HYPERHIDROSIS [None]
  - HYPERSENSITIVITY [None]
  - HYPOAESTHESIA [None]
  - HYPOAESTHESIA FACIAL [None]
  - INADEQUATE ANALGESIA [None]
  - INFLUENZA [None]
  - INSOMNIA [None]
  - JOINT RANGE OF MOTION DECREASED [None]
  - MALAISE [None]
  - MUSCLE TIGHTNESS [None]
  - MYOCARDIAL INFARCTION [None]
  - NAUSEA [None]
  - NECK PAIN [None]
  - NEURALGIA [None]
  - OBSESSIVE-COMPULSIVE DISORDER [None]
  - PAIN [None]
  - PARAESTHESIA [None]
  - PARANOIA [None]
  - RESPIRATORY TRACT CONGESTION [None]
  - SHOULDER PAIN [None]
  - SOMATOFORM DISORDER [None]
  - SYNCOPE [None]
  - VOMITING [None]
  - WEIGHT INCREASED [None]
